FAERS Safety Report 7430038-1 (Version None)
Quarter: 2011Q2

REPORT INFORMATION
  Report Type: 
  Country: None (occurrence: None)
  Receive Date: 20110421
  Receipt Date: 20110415
  Transmission Date: 20111010
  Serious: Yes (Life-Threatening, Hospitalization, Other)
  Sender: FDA-Public Use
  Company Number: RO-ABBOTT-11P-135-0719993-00

PATIENT
  Sex: Male
  Weight: 113 kg

DRUGS (1)
  1. ZEMPLAR [Suspect]
     Indication: HYPERPARATHYROIDISM SECONDARY
     Route: 048
     Dates: end: 20110224

REACTIONS (7)
  - FLUID RETENTION [None]
  - METABOLIC ACIDOSIS [None]
  - TREATMENT NONCOMPLIANCE [None]
  - OEDEMA [None]
  - RENAL FAILURE ACUTE [None]
  - HYPERTENSION [None]
  - AZOTAEMIA [None]
